FAERS Safety Report 17058439 (Version 2)
Quarter: 2019Q4

REPORT INFORMATION
  Report Type: Spontaneous
  Country: SE (occurrence: SE)
  Receive Date: 20191121
  Receipt Date: 20191126
  Transmission Date: 20200122
  Serious: Yes (Other)
  Sender: FDA-Public Use
  Company Number: SE-PFIZER INC-2019497678

PATIENT
  Age: 68 Year
  Sex: Female

DRUGS (6)
  1. CHLOROQUINE. [Interacting]
     Active Substance: CHLOROQUINE
     Indication: COLLAGEN DISORDER
  2. CHLOROQUINE. [Interacting]
     Active Substance: CHLOROQUINE
     Indication: ANALGESIC INTERVENTION SUPPORTIVE THERAPY
     Dosage: 250 MG, DAILY (MORE THAN FIVE YEARS)
  3. INDOMETHACIN [INDOMETACIN] [Interacting]
     Active Substance: INDOMETHACIN
     Dosage: UNK
  4. INDOMETHACIN [INDOMETACIN] [Interacting]
     Active Substance: INDOMETHACIN
     Dosage: UNK
  5. CIPROFLOXACIN HCL [Suspect]
     Active Substance: CIPROFLOXACIN HYDROCHLORIDE
     Indication: OSTEOMYELITIS SALMONELLA
     Dosage: 500 MG, 2X/DAY (BID WAS INITIATED)
  6. NAPROXEN. [Interacting]
     Active Substance: NAPROXEN
     Indication: ANALGESIC INTERVENTION SUPPORTIVE THERAPY
     Dosage: 500 MG, 2X/DAY (BID WAS CONTINUED)

REACTIONS (13)
  - Tremor [Unknown]
  - Polyneuropathy [Unknown]
  - Erythema [Recovering/Resolving]
  - Pain in extremity [Recovering/Resolving]
  - Anxiety [Unknown]
  - Peripheral swelling [Recovering/Resolving]
  - Nerve degeneration [Recovering/Resolving]
  - Dizziness [Recovering/Resolving]
  - Systemic lupus erythematosus [Unknown]
  - Syncope [Recovering/Resolving]
  - Decreased vibratory sense [Recovering/Resolving]
  - Drug interaction [Recovering/Resolving]
  - Toxicity to various agents [Recovering/Resolving]
